FAERS Safety Report 17418903 (Version 2)
Quarter: 2020Q1

REPORT INFORMATION
  Report Type: Spontaneous
  Country: US (occurrence: US)
  Receive Date: 20200214
  Receipt Date: 20200303
  Transmission Date: 20200409
  Serious: No
  Sender: FDA-Public Use
  Company Number: US-JNJFOC-20200218656

PATIENT
  Age: 16 Year
  Sex: Male
  Weight: 61.29 kg

DRUGS (3)
  1. CONCERTA [Suspect]
     Active Substance: METHYLPHENIDATE HYDROCHLORIDE
     Indication: PRODUCT USED FOR UNKNOWN INDICATION
     Route: 048
     Dates: start: 201903
  2. CONCERTA [Suspect]
     Active Substance: METHYLPHENIDATE HYDROCHLORIDE
     Indication: PRODUCT USED FOR UNKNOWN INDICATION
     Route: 048
     Dates: start: 201903
  3. CONCERTA [Suspect]
     Active Substance: METHYLPHENIDATE HYDROCHLORIDE
     Route: 048
     Dates: start: 201911

REACTIONS (5)
  - Insomnia [Not Recovered/Not Resolved]
  - Irritability [Not Recovered/Not Resolved]
  - Therapeutic product effect decreased [Unknown]
  - Disturbance in attention [Unknown]
  - Social avoidant behaviour [Not Recovered/Not Resolved]

NARRATIVE: CASE EVENT DATE: 201911
